FAERS Safety Report 15982392 (Version 1)
Quarter: 2019Q1

REPORT INFORMATION
  Report Type: Spontaneous
  Country: US (occurrence: US)
  Receive Date: 20190219
  Receipt Date: 20190219
  Transmission Date: 20190418
  Serious: No
  Sender: FDA-Public Use
  Company Number: US-ENDO PHARMACEUTICALS INC-2018-041005

PATIENT
  Age: 48 Year
  Sex: Female
  Weight: 63.49 kg

DRUGS (2)
  1. ESTROGEN [Concomitant]
     Active Substance: ESTROGENS
     Indication: HORMONE REPLACEMENT THERAPY
  2. XIAFLEX [Suspect]
     Active Substance: COLLAGENASE CLOSTRIDIUM HISTOLYTICUM
     Indication: DUPUYTREN^S CONTRACTURE
     Dosage: UNK MG, UNKNOWN (2 INJECTIONS)
     Route: 026
     Dates: start: 20180829

REACTIONS (7)
  - Pain in extremity [Not Recovered/Not Resolved]
  - Drug ineffective [Not Recovered/Not Resolved]
  - Contusion [Not Recovered/Not Resolved]
  - Paraesthesia [Unknown]
  - Axillary pain [Unknown]
  - Contusion [Not Recovered/Not Resolved]
  - Peripheral swelling [Not Recovered/Not Resolved]

NARRATIVE: CASE EVENT DATE: 20180829
